FAERS Safety Report 10384313 (Version 1)
Quarter: 2014Q1

REPORT INFORMATION
  Report Type: Spontaneous
  Country: US (occurrence: None)
  Receive Date: 20140306
  Receipt Date: 20140306
  Transmission Date: 20141002
  Serious: Yes (Other)
  Sender: FDA-Public Use
  Company Number: 163-21880-13091348

PATIENT
  Age: 58 Year
  Sex: Male

DRUGS (7)
  1. REVLIMIB (LENALIDOMIDE) (15 MILLIGRAM, CAPSULES) [Suspect]
     Indication: PLASMA CELL MYELOMA
     Route: 048
     Dates: start: 201104
  2. DEXAMETHASONE (TABLETS) [Concomitant]
  3. LOMOTIL (TABLETS) [Concomitant]
  4. VELCADE (BORTEZOMIB) [Concomitant]
  5. ONDANSETRON HCL (TABLETS) [Concomitant]
  6. MUCINEX DM (TUSSIN DM) (SUSTAINED-RELEASE TABLETS) [Concomitant]
  7. ASPIRIN (ACETYLSALICYLIC ACID) (TABLETS) [Concomitant]

REACTIONS (2)
  - Upper respiratory tract congestion [None]
  - Multiple allergies [None]
